FAERS Safety Report 7420795-2 (Version None)
Quarter: 2011Q2

REPORT INFORMATION
  Report Type: 
  Country: None (occurrence: None)
  Receive Date: 20110418
  Receipt Date: 20110405
  Transmission Date: 20111010
  Serious: Yes (Hospitalization)
  Sender: FDA-Public Use
  Company Number: AU-ROCHE-766381

PATIENT
  Age: 99 Year
  Sex: Male

DRUGS (7)
  1. GRANISETRON HCL [Suspect]
     Route: 065
     Dates: start: 20101014
  2. CYCLOPHOSPHAMIDE [Suspect]
     Route: 065
     Dates: start: 20101014
  3. DEXAMETHASONE [Concomitant]
  4. NEULASTA [Suspect]
     Indication: CHEMOTHERAPY
     Route: 058
     Dates: start: 20101015
  5. DOXORUBICIN HYDROCHLORIDE [Suspect]
     Route: 065
     Dates: start: 20101014
  6. VINCRISTINE [Suspect]
     Route: 065
     Dates: start: 20101014
  7. PREDNISOLONE [Concomitant]

REACTIONS (1)
  - NEUTROPENIA [None]
